FAERS Safety Report 5333296-2 (Version None)
Quarter: 2007Q2

REPORT INFORMATION
  Report Type: 
  Country: None (occurrence: None)
  Receive Date: 20070521
  Receipt Date: 20070504
  Transmission Date: 20071010
  Serious: Yes (Death)
  Sender: FDA-Public Use
  Company Number: DSA_25082_2004

PATIENT
  Age: 53 Year
  Sex: Male

DRUGS (1)
  1. DILTIAZEM [Suspect]
     Dosage: 40 DF 1X ORAL
     Route: 048

REACTIONS (6)
  - BLOOD PRESSURE SYSTOLIC DECREASED [None]
  - COMPLETED SUICIDE [None]
  - DYSARTHRIA [None]
  - GENERAL PHYSICAL HEALTH DETERIORATION [None]
  - HEART RATE DECREASED [None]
  - INTENTIONAL DRUG MISUSE [None]
